FAERS Safety Report 8462389-6 (Version None)
Quarter: 2012Q2

REPORT INFORMATION
  Report Type: 
  Country: None (occurrence: None)
  Receive Date: 20120625
  Receipt Date: 20120618
  Transmission Date: 20120825
  Serious: Yes (Hospitalization)
  Sender: FDA-Public Use
  Company Number: US-BAYER-2012-061828

PATIENT
  Age: 42 Year
  Sex: Female
  Weight: 54.875 kg

DRUGS (6)
  1. YAZ [Suspect]
     Indication: ACNE
  2. NITROFURANT MACRO [Concomitant]
     Dosage: 100 MG, UNK
  3. PHENAZOPYRIDINE HCL TAB [Concomitant]
     Dosage: 200 MG, UNK
  4. METHYLPREDNISOLONE [Concomitant]
     Dosage: 4 MG, UNK
  5. YAZ [Suspect]
     Indication: CONTRACEPTION
  6. KETOROLAC TROMETHAMINE [Concomitant]
     Dosage: 10 MG, UNK

REACTIONS (1)
  - PULMONARY EMBOLISM [None]
